FAERS Safety Report 24560028 (Version 5)
Quarter: 2024Q4

REPORT INFORMATION
  Report Type: Spontaneous
  Country: JP (occurrence: JP)
  Receive Date: 20241029
  Receipt Date: 20241219
  Transmission Date: 20250114
  Serious: Yes (Life-Threatening, Hospitalization, Other)
  Sender: ALEXION PHARMACEUTICALS
  Company Number: JP-ASTRAZENECA-240105682_012620_P_1

PATIENT
  Age: 67 Year
  Weight: 42 kg

DRUGS (70)
  1. TRUQAP [Suspect]
     Active Substance: CAPIVASERTIB
     Indication: Breast cancer
     Dosage: 400 MILLIGRAM, BID
     Route: 048
  2. TRUQAP [Suspect]
     Active Substance: CAPIVASERTIB
     Dosage: 400 MILLIGRAM, BID
  3. TRUQAP [Suspect]
     Active Substance: CAPIVASERTIB
     Dosage: 400 MILLIGRAM, BID
     Route: 048
  4. TRUQAP [Suspect]
     Active Substance: CAPIVASERTIB
     Dosage: 400 MILLIGRAM, BID
  5. TRUQAP [Suspect]
     Active Substance: CAPIVASERTIB
     Dosage: ON A 4-DAYS-ON, 3-DAYS-OFF SCHEDULE
     Route: 048
  6. TRUQAP [Suspect]
     Active Substance: CAPIVASERTIB
     Dosage: ON A 4-DAYS-ON, 3-DAYS-OFF SCHEDULE
  7. TRUQAP [Suspect]
     Active Substance: CAPIVASERTIB
     Dosage: ON A 4-DAYS-ON, 3-DAYS-OFF SCHEDULE
     Route: 048
  8. TRUQAP [Suspect]
     Active Substance: CAPIVASERTIB
     Dosage: ON A 4-DAYS-ON, 3-DAYS-OFF SCHEDULE
  9. FULVESTRANT [Suspect]
     Active Substance: FULVESTRANT
     Indication: Breast cancer
     Dosage: DOSE UNKNOWN
  10. FULVESTRANT [Suspect]
     Active Substance: FULVESTRANT
     Dosage: DOSE UNKNOWN
     Route: 030
  11. FULVESTRANT [Suspect]
     Active Substance: FULVESTRANT
     Dosage: DOSE UNKNOWN
  12. FULVESTRANT [Suspect]
     Active Substance: FULVESTRANT
     Dosage: DOSE UNKNOWN
     Route: 030
  13. FULVESTRANT [Suspect]
     Active Substance: FULVESTRANT
     Dosage: DOSE UNKNOWN
  14. FULVESTRANT [Suspect]
     Active Substance: FULVESTRANT
     Dosage: DOSE UNKNOWN
     Route: 030
  15. FULVESTRANT [Suspect]
     Active Substance: FULVESTRANT
     Dosage: DOSE UNKNOWN
  16. FULVESTRANT [Suspect]
     Active Substance: FULVESTRANT
     Dosage: DOSE UNKNOWN
     Route: 030
  17. FULVESTRANT [Suspect]
     Active Substance: FULVESTRANT
     Dosage: 500 MILLIGRAM
  18. FULVESTRANT [Suspect]
     Active Substance: FULVESTRANT
     Dosage: 500 MILLIGRAM
     Route: 030
  19. FULVESTRANT [Suspect]
     Active Substance: FULVESTRANT
     Dosage: 500 MILLIGRAM
  20. FULVESTRANT [Suspect]
     Active Substance: FULVESTRANT
     Dosage: 500 MILLIGRAM
     Route: 030
  21. ALFACALCIDOL [Concomitant]
     Active Substance: ALFACALCIDOL
     Indication: Osteoporosis
     Dosage: DOSE UNKNOWN
  22. ALFACALCIDOL [Concomitant]
     Active Substance: ALFACALCIDOL
     Dosage: DOSE UNKNOWN
     Route: 048
  23. ALFACALCIDOL [Concomitant]
     Active Substance: ALFACALCIDOL
     Dosage: DOSE UNKNOWN
  24. ALFACALCIDOL [Concomitant]
     Active Substance: ALFACALCIDOL
     Dosage: DOSE UNKNOWN
     Route: 048
  25. VONOPRAZAN FUMARATE [Concomitant]
     Active Substance: VONOPRAZAN FUMARATE
     Indication: Gastrooesophageal reflux disease
     Dosage: DOSE UNKNOWN
     Route: 048
  26. VONOPRAZAN FUMARATE [Concomitant]
     Active Substance: VONOPRAZAN FUMARATE
     Dosage: DOSE UNKNOWN
  27. HARUMIGEN F [Concomitant]
     Dosage: DOSE UNKNOWN
     Route: 065
  28. HARUMIGEN F [Concomitant]
     Dosage: DOSE UNKNOWN
     Route: 065
  29. ACETAMINOPHEN [Concomitant]
     Active Substance: ACETAMINOPHEN
     Dosage: DOSE UNKNOWN
     Route: 065
  30. ACETAMINOPHEN [Concomitant]
     Active Substance: ACETAMINOPHEN
     Dosage: DOSE UNKNOWN
     Route: 065
  31. Novamin [Concomitant]
     Dosage: DOSE UNKNOWN
     Route: 065
  32. Novamin [Concomitant]
     Dosage: DOSE UNKNOWN
     Route: 065
  33. HALCION [Concomitant]
     Active Substance: TRIAZOLAM
     Indication: Insomnia
  34. HALCION [Concomitant]
     Active Substance: TRIAZOLAM
     Route: 048
  35. HALCION [Concomitant]
     Active Substance: TRIAZOLAM
  36. HALCION [Concomitant]
     Active Substance: TRIAZOLAM
     Route: 048
  37. HALCION [Concomitant]
     Active Substance: TRIAZOLAM
  38. HALCION [Concomitant]
     Active Substance: TRIAZOLAM
     Route: 048
  39. HALCION [Concomitant]
     Active Substance: TRIAZOLAM
  40. HALCION [Concomitant]
     Active Substance: TRIAZOLAM
     Route: 048
  41. HALCION [Concomitant]
     Active Substance: TRIAZOLAM
  42. HALCION [Concomitant]
     Active Substance: TRIAZOLAM
     Route: 048
  43. TOREMIFENE [Concomitant]
     Active Substance: TOREMIFENE
     Indication: Breast cancer
     Dosage: DOSE UNKNOWN
     Route: 065
  44. TOREMIFENE [Concomitant]
     Active Substance: TOREMIFENE
     Dosage: DOSE UNKNOWN
     Route: 065
  45. EXEMESTANE [Concomitant]
     Active Substance: EXEMESTANE
     Indication: Breast cancer
     Dosage: DOSE UNKNOWN
     Route: 065
  46. EXEMESTANE [Concomitant]
     Active Substance: EXEMESTANE
     Dosage: DOSE UNKNOWN
     Route: 065
  47. EXEMESTANE [Concomitant]
     Active Substance: EXEMESTANE
     Dosage: DOSE UNKNOWN
     Route: 065
  48. EXEMESTANE [Concomitant]
     Active Substance: EXEMESTANE
     Dosage: DOSE UNKNOWN
     Route: 065
  49. EXEMESTANE [Concomitant]
     Active Substance: EXEMESTANE
     Dosage: DOSE UNKNOWN
     Route: 065
  50. EXEMESTANE [Concomitant]
     Active Substance: EXEMESTANE
     Dosage: DOSE UNKNOWN
     Route: 065
  51. EXEMESTANE [Concomitant]
     Active Substance: EXEMESTANE
     Dosage: DOSE UNKNOWN
     Route: 065
  52. EXEMESTANE [Concomitant]
     Active Substance: EXEMESTANE
     Dosage: DOSE UNKNOWN
     Route: 065
  53. EVEROLIMUS [Concomitant]
     Active Substance: EVEROLIMUS
     Indication: Breast cancer
     Dosage: DOSE UNKNOWN
     Route: 065
  54. EVEROLIMUS [Concomitant]
     Active Substance: EVEROLIMUS
     Dosage: DOSE UNKNOWN
     Route: 065
  55. EVEROLIMUS [Concomitant]
     Active Substance: EVEROLIMUS
     Dosage: DOSE UNKNOWN
     Route: 065
  56. EVEROLIMUS [Concomitant]
     Active Substance: EVEROLIMUS
     Dosage: DOSE UNKNOWN
     Route: 065
  57. PALBOCICLIB [Concomitant]
     Active Substance: PALBOCICLIB
     Indication: Breast cancer
     Dosage: DOSE UNKNOWN
     Route: 065
  58. PALBOCICLIB [Concomitant]
     Active Substance: PALBOCICLIB
     Dosage: DOSE UNKNOWN
     Route: 065
  59. PALBOCICLIB [Concomitant]
     Active Substance: PALBOCICLIB
     Dosage: DOSE UNKNOWN
     Route: 065
  60. PALBOCICLIB [Concomitant]
     Active Substance: PALBOCICLIB
     Dosage: DOSE UNKNOWN
     Route: 065
  61. ABEMACICLIB [Concomitant]
     Active Substance: ABEMACICLIB
     Indication: Breast cancer
     Dosage: DOSE UNKNOWN
     Route: 065
  62. ABEMACICLIB [Concomitant]
     Active Substance: ABEMACICLIB
     Dosage: DOSE UNKNOWN
     Route: 065
  63. ABEMACICLIB [Concomitant]
     Active Substance: ABEMACICLIB
     Dosage: DOSE UNKNOWN
     Route: 065
  64. ABEMACICLIB [Concomitant]
     Active Substance: ABEMACICLIB
     Dosage: DOSE UNKNOWN
     Route: 065
  65. TS [Concomitant]
     Indication: Breast cancer
     Dosage: DOSE UNKNOWN
     Route: 065
  66. TS [Concomitant]
     Dosage: DOSE UNKNOWN
     Route: 065
  67. ANASTROZOLE [Concomitant]
     Active Substance: ANASTROZOLE
     Indication: Breast cancer
     Dosage: DOSE UNKNOWN
     Route: 065
  68. ANASTROZOLE [Concomitant]
     Active Substance: ANASTROZOLE
     Dosage: DOSE UNKNOWN
     Route: 065
  69. ANASTROZOLE [Concomitant]
     Active Substance: ANASTROZOLE
     Dosage: DOSE UNKNOWN
     Route: 065
  70. ANASTROZOLE [Concomitant]
     Active Substance: ANASTROZOLE
     Dosage: DOSE UNKNOWN
     Route: 065

REACTIONS (5)
  - Diabetic ketoacidosis [Recovered/Resolved]
  - Septic shock [Unknown]
  - Hydronephrosis [Unknown]
  - Diarrhoea [Recovered/Resolved]
  - Urinary tract infection [Recovered/Resolved]
